FAERS Safety Report 8834045 (Version 1)
Quarter: 2012Q4

REPORT INFORMATION
  Report Type: 
  Country: CA (occurrence: CA)
  Receive Date: 20121010
  Receipt Date: 20121010
  Transmission Date: 20130627
  Serious: No
  Sender: FDA-Public Use
  Company Number: CA-009507513-1210CAN002619

PATIENT
  Age: 48 Year
  Sex: Female
  Weight: 84 kg

DRUGS (5)
  1. SAPHRIS [Suspect]
     Indication: SCHIZOPHRENIA
     Dosage: 10 mg, qd
     Route: 060
     Dates: start: 20120507, end: 20120715
  2. CIPRALEX [Concomitant]
     Indication: DEPRESSION
     Dosage: 60 mg, qd
     Route: 048
  3. FLOVENT [Concomitant]
     Indication: ASTHMA
     Dosage: 2 DF, bid
  4. VENTOLIN (ALBUTEROL SULFATE) [Concomitant]
     Indication: ASTHMA
     Dosage: UNK, prn
  5. SYNTHROID [Concomitant]
     Indication: THYROID DISORDER
     Dosage: 175 Microgram, qd

REACTIONS (2)
  - Dyspnoea [Recovered/Resolved]
  - Inappropriate schedule of drug administration [Unknown]
